FAERS Safety Report 5968917-4 (Version None)
Quarter: 2008Q4

REPORT INFORMATION
  Report Type: 
  Country: None (occurrence: None)
  Receive Date: 20081126
  Receipt Date: 20081118
  Transmission Date: 20090506
  Serious: Yes (Other)
  Sender: FDA-Public Use
  Company Number: IL-AMGEN-UK319618

PATIENT
  Age: 26 Year
  Sex: Female

DRUGS (7)
  1. NEULASTIM [Suspect]
     Indication: CHEMOTHERAPY
     Route: 065
  2. ETOPOSIDE [Concomitant]
     Route: 065
  3. DOXORUBICIN HCL [Concomitant]
     Route: 065
  4. CYCLOPHOSPHAMIDE [Concomitant]
     Route: 065
  5. VINCRISTINE [Concomitant]
     Route: 065
  6. PROCARBAZINE [Concomitant]
     Route: 065
  7. PREDNISONE TAB [Concomitant]
     Route: 065

REACTIONS (3)
  - DISEASE PROGRESSION [None]
  - LEUKOCYTOSIS [None]
  - SHIFT TO THE LEFT [None]
